FAERS Safety Report 6441939-5 (Version None)
Quarter: 2009Q4

REPORT INFORMATION
  Report Type: 
  Country: None (occurrence: None)
  Receive Date: 20091116
  Receipt Date: 20091104
  Transmission Date: 20100525
  Serious: Yes (Other)
  Sender: FDA-Public Use
  Company Number: KR-PFIZER INC-2009267839

PATIENT
  Sex: Female

DRUGS (1)
  1. XANAX [Suspect]
     Indication: ANXIETY
     Route: 048

REACTIONS (12)
  - DRUG DOSE OMISSION [None]
  - FEAR [None]
  - JOINT STIFFNESS [None]
  - MUSCLE SPASMS [None]
  - MUSCLE TWITCHING [None]
  - MUSCULOSKELETAL STIFFNESS [None]
  - OROPHARYNGEAL DISCOMFORT [None]
  - PARALYSIS [None]
  - SOMNOLENCE [None]
  - THROAT IRRITATION [None]
  - TONGUE PARALYSIS [None]
  - TREMOR [None]
